FAERS Safety Report 7584777-2 (Version None)
Quarter: 2011Q2

REPORT INFORMATION
  Report Type: 
  Country: None (occurrence: None)
  Receive Date: 20110630
  Receipt Date: 20110620
  Transmission Date: 20111010
  Serious: Yes (Disabling, Other)
  Sender: FDA-Public Use
  Company Number: PHHY2010LT75844

PATIENT
  Age: 43 Year
  Sex: Male

DRUGS (1)
  1. GLEEVEC [Suspect]
     Indication: METASTASES TO LIVER
     Dosage: 400 MG, QD
     Route: 048
     Dates: start: 20070101

REACTIONS (2)
  - MOTOR NEURONE DISEASE [None]
  - PARANEOPLASTIC SYNDROME [None]
